FAERS Safety Report 23484398 (Version 1)
Quarter: 2024Q1

REPORT INFORMATION
  Report Type: Spontaneous
  Country: US (occurrence: US)
  Receive Date: 20240206
  Receipt Date: 20240206
  Transmission Date: 20240409
  Serious: Yes (Hospitalization, Other)
  Sender: FDA-Public Use
  Company Number: US-GLAXOSMITHKLINE-US2024AMR013981

PATIENT

DRUGS (1)
  1. OJJAARA [Suspect]
     Active Substance: MOMELOTINIB DIHYDROCHLORIDE MONOHYDRATE
     Indication: Myelofibrosis
     Dosage: UNK
     Dates: start: 202311

REACTIONS (9)
  - Hospitalisation [Unknown]
  - Pneumonia [Unknown]
  - Sepsis [Unknown]
  - Hypothyroidism [Unknown]
  - Selective IgG subclass deficiency [Unknown]
  - Deafness [Unknown]
  - Fall [Unknown]
  - Drug intolerance [Unknown]
  - Tooth extraction [Unknown]
